FAERS Safety Report 12822840 (Version 1)
Quarter: 2016Q4

REPORT INFORMATION
  Report Type: Spontaneous
  Country: SI (occurrence: SI)
  Receive Date: 20161007
  Receipt Date: 20161007
  Transmission Date: 20170207
  Serious: Yes (Life-Threatening)
  Sender: FDA-Public Use
  Company Number: SI-009507513-1607SVK008004

PATIENT
  Age: 63 Year
  Sex: Male

DRUGS (5)
  1. PROPOFOL. [Concomitant]
     Active Substance: PROPOFOL
     Indication: GENERAL ANAESTHESIA
     Dosage: UNK
     Route: 042
     Dates: start: 20160717, end: 20160717
  2. CEFAMEZIN [Concomitant]
     Active Substance: CEFAZOLIN
     Indication: GENERAL ANAESTHESIA
     Dosage: UNK
     Route: 042
     Dates: start: 20160717, end: 20160717
  3. SEVOFLURANE. [Concomitant]
     Active Substance: SEVOFLURANE
     Indication: GENERAL ANAESTHESIA
     Dosage: UNK
     Route: 045
     Dates: start: 20160717, end: 20160717
  4. ESMERON [Suspect]
     Active Substance: ROCURONIUM BROMIDE
     Indication: RELAXATION THERAPY
     Dosage: 50 MG, ONCE
     Route: 042
     Dates: start: 20160717, end: 20160717
  5. SUFENTANIL [Concomitant]
     Active Substance: SUFENTANIL
     Indication: GENERAL ANAESTHESIA
     Dosage: UNK
     Route: 042
     Dates: start: 20160717, end: 20160717

REACTIONS (3)
  - Vasodilatation [Recovered/Resolved]
  - Generalised erythema [Recovered/Resolved]
  - Blood pressure decreased [Recovered/Resolved]

NARRATIVE: CASE EVENT DATE: 20160717
